FAERS Safety Report 4507519-3 (Version None)
Quarter: 2004Q4

REPORT INFORMATION
  Report Type: 
  Country: None (occurrence: None)
  Receive Date: 20041118
  Receipt Date: 20041108
  Transmission Date: 20050328
  Serious: Yes (Hospitalization, Other)
  Sender: FDA-Public Use
  Company Number: 2004083444

PATIENT
  Age: 43 Year
  Sex: Male

DRUGS (2)
  1. NORVASC [Suspect]
     Indication: SUICIDE ATTEMPT
     Dosage: 80 MG (80 MG ONCE ORAL)
     Route: 048
  2. CALCIUM CARBONATE (CALCIUM CARBONATE) [Concomitant]

REACTIONS (3)
  - IMPULSIVE BEHAVIOUR [None]
  - INTENTIONAL OVERDOSE [None]
  - SUICIDE ATTEMPT [None]
